FAERS Safety Report 6066828-X (Version None)
Quarter: 2009Q1

REPORT INFORMATION
  Report Type: 
  Country: None (occurrence: None)
  Receive Date: 20090205
  Receipt Date: 20090127
  Transmission Date: 20090719
  Serious: Yes (Other)
  Sender: FDA-Public Use
  Company Number: US-ELI_LILLY_AND_COMPANY-US200901002464

PATIENT
  Sex: Male
  Weight: 88.209 kg

DRUGS (15)
  1. HUMALOG [Suspect]
  2. HUMAN INSULIN (RDNA ORIGIN) [Suspect]
  3. ACULAR [Concomitant]
  4. PRED FORTE [Concomitant]
  5. COZAAR [Concomitant]
     Indication: BLOOD PRESSURE
  6. SIMVASTATIN [Concomitant]
     Indication: BLOOD CHOLESTEROL
  7. NEXIUM [Concomitant]
     Indication: GASTROOESOPHAGEAL REFLUX DISEASE
  8. FLOMAX [Concomitant]
     Indication: BENIGN PROSTATIC HYPERPLASIA
  9. PROSCAR [Concomitant]
     Indication: BENIGN PROSTATIC HYPERPLASIA
  10. LASIX [Concomitant]
     Indication: OEDEMA
  11. ACTOS [Concomitant]
     Indication: DIABETES MELLITUS
  12. LYRICA [Concomitant]
     Indication: NEUROPATHY PERIPHERAL
  13. GLIPIZIDE [Concomitant]
     Indication: DIABETES MELLITUS
  14. VICODIN [Concomitant]
     Dosage: UNK, AS NEEDED
  15. XANAX [Concomitant]
     Dosage: UNK, AS NEEDED

REACTIONS (2)
  - BLOOD GLUCOSE DECREASED [None]
  - HYPOGLYCAEMIC UNCONSCIOUSNESS [None]
